FAERS Safety Report 5142726-0 (Version None)
Quarter: 2006Q4

REPORT INFORMATION
  Report Type: 
  Country: None (occurrence: None)
  Receive Date: 20061102
  Receipt Date: 20050922
  Transmission Date: 20070319
  Serious: Yes (Other)
  Sender: FDA-Public Use
  Company Number: 2005UW14212

PATIENT
  Age: 10 Year
  Sex: Female

DRUGS (3)
  1. SEROQUEL [Suspect]
     Route: 048
  2. PREVACID [Concomitant]
     Route: 048
  3. SERTRALINE [Concomitant]

REACTIONS (2)
  - AGITATION [None]
  - PERSONALITY DISORDER [None]
